FAERS Safety Report 16833903 (Version 4)
Quarter: 2022Q1

REPORT INFORMATION
  Report Type: Report from Study
  Country: CA (occurrence: CA)
  Receive Date: 20190920
  Receipt Date: 20220309
  Transmission Date: 20220423
  Serious: Yes (Hospitalization)
  Sender: FDA-Public Use
  Company Number: CA-JNJFOC-20190919411

PATIENT
  Age: 48 Year
  Sex: Male
  Weight: 68 kg

DRUGS (2)
  1. STELARA [Suspect]
     Active Substance: USTEKINUMAB
     Indication: Crohn^s disease
     Route: 042
     Dates: start: 20190723, end: 201909
  2. STELARA [Suspect]
     Active Substance: USTEKINUMAB
     Dosage: RESTARTED
     Route: 058
     Dates: start: 20210902

REACTIONS (6)
  - Intestinal obstruction [Unknown]
  - Surgery [Unknown]
  - Infection [Recovering/Resolving]
  - Illness [Unknown]
  - Off label use [Unknown]
  - Product use issue [Unknown]

NARRATIVE: CASE EVENT DATE: 20210830
